FAERS Safety Report 9559456 (Version 1)
Quarter: 2013Q3

REPORT INFORMATION
  Report Type: Spontaneous
  Country: US (occurrence: None)
  Receive Date: 20130925
  Receipt Date: 20130925
  Transmission Date: 20140515
  Serious: Yes (Other)
  Sender: FDA-Public Use
  Company Number: 2013RT000025

PATIENT
  Age: 18 Year
  Sex: Female

DRUGS (1)
  1. PROCYSBI [Suspect]
     Route: 048
     Dates: start: 20130713

REACTIONS (2)
  - Leukopenia [None]
  - Agranulocytosis [None]
